FAERS Safety Report 8887710 (Version 1)
Quarter: 2012Q4

REPORT INFORMATION
  Report Type: Report from Study
  Country: US (occurrence: US)
  Receive Date: 20121106
  Receipt Date: 20121106
  Transmission Date: 20130627
  Serious: Yes (Hospitalization)
  Sender: FDA-Public Use
  Company Number: US-ABBOTT-12P-163-1002160-00

PATIENT
  Age: 71 Year
  Sex: Female
  Weight: 51.76 kg

DRUGS (16)
  1. HUMIRA [Suspect]
     Indication: CROHN^S DISEASE
     Dates: start: 20120731, end: 20120731
  2. HUMIRA [Suspect]
     Dates: start: 20120814, end: 20120814
  3. HUMIRA [Suspect]
     Dates: start: 20120828
  4. ASACOL [Concomitant]
     Indication: CROHN^S DISEASE
  5. OMEPRAZOLE [Concomitant]
     Indication: GASTROOESOPHAGEAL REFLUX DISEASE
  6. ROBINUL [Concomitant]
     Indication: CROHN^S DISEASE
  7. METOPROLOL SUCCINATE [Concomitant]
     Indication: HYPERTENSION
  8. HYDROCHLOROTHIAZIDE [Concomitant]
     Indication: HYPERTENSION
  9. POTASSIUM CHLORIDE [Concomitant]
     Indication: PRODUCT USED FOR UNKNOWN INDICATION
  10. LOSARTAN [Concomitant]
     Indication: HYPERTENSION
  11. FOLIC ACID [Concomitant]
     Indication: PRODUCT USED FOR UNKNOWN INDICATION
  12. VITAMIN B12 [Concomitant]
     Indication: PRODUCT USED FOR UNKNOWN INDICATION
     Dosage: 1cc monthly
  13. COATED ASPIRIN [Concomitant]
     Indication: PRODUCT USED FOR UNKNOWN INDICATION
  14. IRON [Concomitant]
     Indication: PRODUCT USED FOR UNKNOWN INDICATION
  15. CENTRUM SILVER [Concomitant]
     Indication: PRODUCT USED FOR UNKNOWN INDICATION
  16. OMEGA 3 [Concomitant]
     Indication: SUPPLEMENTATION THERAPY

REACTIONS (10)
  - Intestinal obstruction [Recovering/Resolving]
  - Abdominal pain [Unknown]
  - Crohn^s disease [Unknown]
  - Postoperative adhesion [Unknown]
  - Abdominal pain upper [Unknown]
  - Nausea [Unknown]
  - Retching [Unknown]
  - Blood pressure increased [Unknown]
  - Anxiety [Unknown]
  - Drug dose omission [Unknown]
